FAERS Safety Report 9280110 (Version 4)
Quarter: 2013Q3

REPORT INFORMATION
  Report Type: Spontaneous
  Country: US (occurrence: US)
  Receive Date: 20130509
  Receipt Date: 20130916
  Transmission Date: 20140515
  Serious: Yes (Other)
  Sender: FDA-Public Use
  Company Number: US-JNJFOC-20130500136

PATIENT
  Age: 60 Year
  Sex: Female
  Weight: 76.66 kg

DRUGS (6)
  1. STELARA [Suspect]
     Indication: PSORIASIS
     Route: 058
     Dates: start: 201306
  2. STELARA [Suspect]
     Indication: PSORIASIS
     Route: 058
     Dates: start: 201008, end: 201303
  3. REMICADE [Suspect]
     Indication: PSORIASIS
     Route: 042
  4. ENBREL [Suspect]
     Indication: PSORIASIS
     Route: 065
  5. HUMIRA [Suspect]
     Indication: PSORIASIS
     Route: 065
  6. SYNTHROID [Concomitant]
     Indication: HYPOTHYROIDISM
     Dosage: 112 MCG= 0.112 MG
     Route: 065

REACTIONS (1)
  - Medullary thyroid cancer [Recovered/Resolved]
